FAERS Safety Report 16882037 (Version 2)
Quarter: 2019Q4

REPORT INFORMATION
  Report Type: Spontaneous
  Country: JP (occurrence: JP)
  Receive Date: 20191003
  Receipt Date: 20191108
  Transmission Date: 20200122
  Serious: Yes (Hospitalization, Other)
  Sender: FDA-Public Use
  Company Number: JP-FERRINGPH-2019FE06345

PATIENT
  Age: 81 Year
  Sex: Male

DRUGS (2)
  1. DEGARELIX [Suspect]
     Active Substance: DEGARELIX
     Indication: PROSTATE CANCER
     Dosage: 80 MG, EVERY 4 WEEKS
     Route: 058
     Dates: start: 20170901, end: 20190101
  2. BICALUTAMIDE. [Suspect]
     Active Substance: BICALUTAMIDE
     Indication: PRODUCT USED FOR UNKNOWN INDICATION
     Route: 065

REACTIONS (1)
  - Interstitial lung disease [Recovering/Resolving]

NARRATIVE: CASE EVENT DATE: 20180201
